FAERS Safety Report 22129380 (Version 1)
Quarter: 2023Q1

REPORT INFORMATION
  Report Type: Spontaneous
  Country: US (occurrence: US)
  Receive Date: 20230323
  Receipt Date: 20230323
  Transmission Date: 20230418
  Serious: No
  Sender: FDA-Public Use
  Company Number: US-Ipsen Biopharmaceuticals, Inc.-2023-06648

PATIENT
  Sex: Female

DRUGS (1)
  1. DYSPORT [Suspect]
     Active Substance: ABOBOTULINUMTOXINA
     Indication: Skin wrinkling
     Dosage: 54 UNIT: 6 INJECTION POINT TOTAL, 66 UNIT: 4 INJECTION POINT TOTAL, ?36 UNIT: 7 INJECTION POINT TOTA
     Route: 030
     Dates: start: 20220912

REACTIONS (1)
  - Drug ineffective [Unknown]
